FAERS Safety Report 9820183 (Version 1)
Quarter: 2013Q4

REPORT INFORMATION
  Report Type: Spontaneous
  Country: US (occurrence: None)
  Receive Date: 20131024
  Receipt Date: 20131024
  Transmission Date: 20140711
  Serious: Yes (Hospitalization, Other)
  Sender: FDA-Public Use
  Company Number: 2013-01587

PATIENT
  Age: 15 Year
  Sex: Female

DRUGS (2)
  1. QUETIAPINE [Suspect]
     Indication: MAJOR DEPRESSION
  2. METFORMIN [Suspect]
     Indication: PRODUCT USED FOR UNKNOWN INDICATION

REACTIONS (4)
  - Intentional overdose [None]
  - Somnolence [None]
  - Hypoglycaemia [None]
  - Lactic acidosis [None]
